FAERS Safety Report 4718416-2 (Version None)
Quarter: 2005Q3

REPORT INFORMATION
  Report Type: 
  Country: None (occurrence: None)
  Receive Date: 20050720
  Receipt Date: 20050714
  Transmission Date: 20060218
  Serious: Yes (Hospitalization)
  Sender: FDA-Public Use
  Company Number: US-MERCK-0507USA01766

PATIENT
  Age: 67 Year
  Sex: Female

DRUGS (3)
  1. DECADRON [Suspect]
     Route: 048
  2. PERCOCET [Concomitant]
     Route: 065
  3. ANTINEOPLASTIC (UNSPECIFIED) [Concomitant]
     Route: 065

REACTIONS (4)
  - ASTHENIA [None]
  - CUSHINGOID [None]
  - DIZZINESS [None]
  - LETHARGY [None]
